FAERS Safety Report 12533232 (Version 1)
Quarter: 2016Q3

REPORT INFORMATION
  Report Type: Spontaneous
  Country: US (occurrence: US)
  Receive Date: 20160706
  Receipt Date: 20160706
  Transmission Date: 20161109
  Serious: Yes (Other)
  Sender: FDA-Public Use
  Company Number: US-PURDUE PHARMA-USA-2015-0127154

PATIENT
  Age: 68 Year
  Sex: Female

DRUGS (5)
  1. BUTRANS [Suspect]
     Active Substance: BUPRENORPHINE
     Dosage: 10 MCG/HR, WEEKLY
     Route: 062
  2. BUTRANS [Suspect]
     Active Substance: BUPRENORPHINE
     Indication: IMPAIRED GASTRIC EMPTYING
     Dosage: 15 MCG/HR, WEEKLY
     Route: 062
  3. STADOL [Suspect]
     Active Substance: BUTORPHANOL TARTRATE
     Indication: PAIN
     Dosage: 1 SPRAY,BID  PRN
     Route: 045
     Dates: start: 20151013, end: 20151028
  4. STADOL [Suspect]
     Active Substance: BUTORPHANOL TARTRATE
     Indication: IMPAIRED GASTRIC EMPTYING
     Dosage: 1 SPRAY, QOD
     Route: 045
  5. BUTRANS [Suspect]
     Active Substance: BUPRENORPHINE
     Indication: PAIN
     Dosage: 20 MCG/HR, WEEKLY
     Route: 062
     Dates: start: 20150728

REACTIONS (1)
  - Hallucination [Recovered/Resolved]

NARRATIVE: CASE EVENT DATE: 20151013
